FAERS Safety Report 25278241 (Version 1)
Quarter: 2025Q2

REPORT INFORMATION
  Report Type: Spontaneous
  Country: US (occurrence: US)
  Receive Date: 20250507
  Receipt Date: 20250507
  Transmission Date: 20250716
  Serious: Yes (Other)
  Sender: COLLEGIUM PHARMACEUTICAL
  Company Number: US-COLLEGIUM PHARMACEUTICAL, INC.-20250402057

PATIENT

DRUGS (2)
  1. NUCYNTA [Suspect]
     Active Substance: TAPENTADOL HYDROCHLORIDE
     Indication: Complex regional pain syndrome
     Route: 065
     Dates: start: 2010
  2. NUCYNTA [Suspect]
     Active Substance: TAPENTADOL HYDROCHLORIDE
     Indication: Neuralgia

REACTIONS (7)
  - Craniocerebral injury [Unknown]
  - Brain oedema [Unknown]
  - Concussion [Unknown]
  - Road traffic accident [Unknown]
  - Post-traumatic stress disorder [Unknown]
  - Insomnia [Unknown]
  - Inability to afford medication [Unknown]
